FAERS Safety Report 7206041-3 (Version None)
Quarter: 2011Q1

REPORT INFORMATION
  Report Type: 
  Country: None (occurrence: None)
  Receive Date: 20110103
  Receipt Date: 20101228
  Transmission Date: 20110831
  Serious: Yes (Other)
  Sender: FDA-Public Use
  Company Number: DE-AMGEN-DEUSP2010012432

PATIENT

DRUGS (2)
  1. ENBREL [Suspect]
     Indication: PSORIASIS
     Dosage: 25 MG, 2X/WEEK
     Dates: start: 20080401
  2. ENBREL [Suspect]

REACTIONS (2)
  - COMPUTERISED TOMOGRAM ABNORMAL [None]
  - CHEST X-RAY ABNORMAL [None]
